FAERS Safety Report 6599554-9 (Version None)
Quarter: 2010Q1

REPORT INFORMATION
  Report Type: 
  Country: None (occurrence: None)
  Receive Date: 20100224
  Receipt Date: 20100212
  Transmission Date: 20100710
  Serious: Yes (Death, Hospitalization)
  Sender: FDA-Public Use
  Company Number: ES-ROCHE-685088

PATIENT
  Age: 64 Year
  Sex: Female

DRUGS (4)
  1. AVASTIN [Suspect]
     Route: 042
     Dates: start: 20081101, end: 20090501
  2. AVASTIN [Suspect]
     Route: 042
     Dates: start: 20090701, end: 20091001
  3. FOLFIRI REGIMEN [Suspect]
     Route: 065
     Dates: start: 20081101, end: 20090501
  4. FOLFIRI REGIMEN [Suspect]
     Route: 065
     Dates: start: 20090701, end: 20091001

REACTIONS (3)
  - HEMIPARESIS [None]
  - MALIGNANT NEOPLASM PROGRESSION [None]
  - VISUAL IMPAIRMENT [None]
